FAERS Safety Report 26005429 (Version 2)
Quarter: 2025Q4

REPORT INFORMATION
  Report Type: Spontaneous
  Country: US (occurrence: US)
  Receive Date: 20251106
  Receipt Date: 20251126
  Transmission Date: 20260117
  Serious: No
  Sender: ABBVIE
  Company Number: US-ABBVIE-6533872

PATIENT
  Age: 46 Year
  Sex: Female

DRUGS (3)
  1. BOTOX COSMETIC [Suspect]
     Active Substance: ONABOTULINUMTOXINA
     Indication: Skin wrinkling
     Dosage: TIME INTERVAL: AS NECESSARY: DOSE: 16 UNITS?TOTAL DOSE: 46 UNITS
     Route: 023
     Dates: start: 20251029, end: 20251029
  2. BOTOX COSMETIC [Suspect]
     Active Substance: ONABOTULINUMTOXINA
     Indication: Skin wrinkling
     Dosage: TIME INTERVAL: AS NECESSARY: DOSE: 16 UNITS?TOTAL DOSE: 46 UNITS
     Route: 023
     Dates: start: 20251029, end: 20251029
  3. BOTOX COSMETIC [Suspect]
     Active Substance: ONABOTULINUMTOXINA
     Indication: Skin wrinkling
     Dosage: TIME INTERVAL: AS NECESSARY: DOSE: 14 UNITS?TOTAL DOSE: 46 UNITS
     Route: 023
     Dates: start: 20251029, end: 20251029

REACTIONS (3)
  - Product preparation error [Unknown]
  - Dysphagia [Unknown]
  - Neck pain [Unknown]

NARRATIVE: CASE EVENT DATE: 20251030
